FAERS Safety Report 23562536 (Version 3)
Quarter: 2024Q2

REPORT INFORMATION
  Report Type: Spontaneous
  Country: US (occurrence: US)
  Receive Date: 20240226
  Receipt Date: 20240619
  Transmission Date: 20240716
  Serious: No
  Sender: FDA-Public Use
  Company Number: US-SA-SAC20240216000593

PATIENT
  Age: 32 Year
  Sex: Male

DRUGS (1)
  1. DUPIXENT [Suspect]
     Active Substance: DUPILUMAB
     Indication: Dermatitis atopic
     Dosage: 300 MG, QOW
     Route: 058

REACTIONS (9)
  - Irritable bowel syndrome [Unknown]
  - Change of bowel habit [Unknown]
  - Abdominal distension [Unknown]
  - Eczema [Recovered/Resolved]
  - Eyelid exfoliation [Recovered/Resolved]
  - Eye pruritus [Unknown]
  - Dry eye [Unknown]
  - Eye irritation [Recovered/Resolved]
  - Inappropriate schedule of product administration [Unknown]
